FAERS Safety Report 15470612 (Version 7)
Quarter: 2019Q3

REPORT INFORMATION
  Report Type: Report from Study
  Country: US (occurrence: US)
  Receive Date: 20181005
  Receipt Date: 20190830
  Transmission Date: 20191004
  Serious: Yes (Hospitalization)
  Sender: FDA-Public Use
  Company Number: US-ACTELION-A-NJ2017-163704

PATIENT
  Age: 80 Year
  Sex: Female
  Weight: 72.56 kg

DRUGS (4)
  1. OXYGEN. [Concomitant]
     Active Substance: OXYGEN
  2. OPSUMIT [Suspect]
     Active Substance: MACITENTAN
     Indication: PULMONARY HYPERTENSION
     Dosage: 10 MG, QD
     Route: 048
     Dates: start: 20150108, end: 20190617
  3. PREDNISONE. [Concomitant]
     Active Substance: PREDNISONE
  4. ADEMPAS [Suspect]
     Active Substance: RIOCIGUAT
     Indication: PRODUCT USED FOR UNKNOWN INDICATION
     Route: 065

REACTIONS (22)
  - Condition aggravated [Unknown]
  - Interstitial lung disease [Unknown]
  - Lung consolidation [Unknown]
  - Hypophagia [Unknown]
  - Dyspnoea [Recovered/Resolved with Sequelae]
  - Hypoxia [Unknown]
  - Taste disorder [Unknown]
  - Eye disorder [Unknown]
  - Pneumonia [Recovered/Resolved with Sequelae]
  - Weight decreased [Unknown]
  - Device failure [Unknown]
  - Malaise [Unknown]
  - Hospice care [Unknown]
  - Pneumonitis [Unknown]
  - Oxygen saturation decreased [Recovered/Resolved with Sequelae]
  - Cataract [Unknown]
  - Lung disorder [Unknown]
  - Acute respiratory failure [Recovered/Resolved with Sequelae]
  - Cardiac failure acute [Recovered/Resolved]
  - Hypercapnia [Recovered/Resolved with Sequelae]
  - Angina pectoris [Unknown]
  - Speech disorder [Unknown]

NARRATIVE: CASE EVENT DATE: 20180612
